FAERS Safety Report 9515051 (Version 1)
Quarter: 2013Q3

REPORT INFORMATION
  Report Type: Spontaneous
  Country: FR (occurrence: FR)
  Receive Date: 20130911
  Receipt Date: 20130911
  Transmission Date: 20140515
  Serious: Yes (Hospitalization)
  Sender: FDA-Public Use
  Company Number: FR-JNJFOC-20130902222

PATIENT
  Age: 13 Year
  Sex: Male
  Weight: 70 kg

DRUGS (1)
  1. RISPERDAL [Suspect]
     Indication: PRODUCT USED FOR UNKNOWN INDICATION
     Dosage: 2 MG IN THE MORNING AND 1 MG IN THE EVENING.
     Route: 048

REACTIONS (2)
  - Homicidal ideation [Unknown]
  - Treatment noncompliance [Unknown]
